FAERS Safety Report 14617485 (Version 1)
Quarter: 2018Q1

REPORT INFORMATION
  Report Type: Spontaneous
  Country: US (occurrence: US)
  Receive Date: 20180308
  Receipt Date: 20180308
  Transmission Date: 20180509
  Serious: No
  Sender: FDA-Public Use
  Company Number: None

PATIENT
  Age: 61 Year
  Sex: Female

DRUGS (1)
  1. AMOXICILLIN. [Suspect]
     Active Substance: AMOXICILLIN
     Route: 048
     Dates: start: 20171212, end: 20180111

REACTIONS (4)
  - Nausea [None]
  - Sinusitis [None]
  - Rash [None]
  - Vomiting [None]

NARRATIVE: CASE EVENT DATE: 20180111
